FAERS Safety Report 4462446-5 (Version None)
Quarter: 2004Q3

REPORT INFORMATION
  Report Type: 
  Country: None (occurrence: None)
  Receive Date: 20040924
  Receipt Date: 20040910
  Transmission Date: 20050211
  Serious: Yes (Life-Threatening, Hospitalization, Other)
  Sender: FDA-Public Use
  Company Number: 2004066184

PATIENT
  Age: 62 Year
  Sex: Female
  Weight: 106.5953 kg

DRUGS (6)
  1. ZOLOFT [Suspect]
     Indication: DEPRESSION
     Dosage: 200 MG (1 IN 1 D), ORAL
     Route: 048
     Dates: start: 19850101
  2. ALPRAZOLAM [Suspect]
     Indication: ILL-DEFINED DISORDER
  3. INSULIN [Concomitant]
  4. CETIRIZINE HCL [Concomitant]
  5. CLONAZEPAM [Concomitant]
  6. METFORMIN HCL [Concomitant]

REACTIONS (3)
  - IMPAIRED WORK ABILITY [None]
  - INTENTIONAL OVERDOSE [None]
  - SUICIDE ATTEMPT [None]
